FAERS Safety Report 5615410-4 (Version None)
Quarter: 2008Q1

REPORT INFORMATION
  Report Type: 
  Country: None (occurrence: None)
  Receive Date: 20080206
  Receipt Date: 20080122
  Transmission Date: 20080703
  Serious: Yes (Hospitalization)
  Sender: FDA-Public Use
  Company Number: TW-ELI_LILLY_AND_COMPANY-TW200801000829

PATIENT
  Sex: Male
  Weight: 71 kg

DRUGS (1)
  1. SOMATROPIN [Suspect]
     Indication: GROWTH HORMONE DEFICIENCY
     Dosage: 1.47 MG, DAILY (1/D)
     Route: 058
     Dates: start: 20000301, end: 20070524

REACTIONS (1)
  - CONGESTIVE CARDIOMYOPATHY [None]
